FAERS Safety Report 25996659 (Version 1)
Quarter: 2025Q4

REPORT INFORMATION
  Report Type: Spontaneous
  Country: US (occurrence: US)
  Receive Date: 20251104
  Receipt Date: 20251104
  Transmission Date: 20260117
  Serious: No
  Sender: INSUD PHARMA
  Company Number: US-INSUD PHARMA-2510US08867

PATIENT

DRUGS (1)
  1. CLOBETASOL [Suspect]
     Active Substance: CLOBETASOL
     Indication: Macule
     Dosage: TWICE A DAY FOR TWO WEEKS
     Route: 061
     Dates: start: 202509

REACTIONS (6)
  - Drug ineffective [Unknown]
  - Poor quality product administered [Unknown]
  - Accidental exposure to product [Unknown]
  - Product physical consistency issue [Unknown]
  - Product quality issue [Unknown]
  - Product container issue [Unknown]

NARRATIVE: CASE EVENT DATE: 20250101
